FAERS Safety Report 21944887 (Version 1)
Quarter: 2023Q1

REPORT INFORMATION
  Report Type: Spontaneous
  Country: US (occurrence: US)
  Receive Date: 20230202
  Receipt Date: 20230202
  Transmission Date: 20230417
  Serious: Yes (Other)
  Sender: FDA-Public Use
  Company Number: US-BAYER-2023A012691

PATIENT
  Age: 74 Year
  Sex: Male

DRUGS (1)
  1. GADAVIST [Suspect]
     Active Substance: GADOBUTROL
     Dosage: UNK UNK, ONCE
     Dates: start: 20230103, end: 20230103

REACTIONS (7)
  - Contrast media reaction [None]
  - Dyspnoea [None]
  - Burning sensation [None]
  - Myalgia [None]
  - Arthralgia [None]
  - Heart rate increased [None]
  - Dizziness [None]
